FAERS Safety Report 15880393 (Version 1)
Quarter: 2019Q1

REPORT INFORMATION
  Report Type: Spontaneous
  Country: US (occurrence: US)
  Receive Date: 20190128
  Receipt Date: 20190128
  Transmission Date: 20190417
  Serious: Yes (Other)
  Sender: FDA-Public Use
  Company Number: None

PATIENT
  Age: 40 Year
  Sex: Female
  Weight: 106.65 kg

DRUGS (14)
  1. NORTRYPTULINE [Concomitant]
  2. DHA [Concomitant]
     Active Substance: DIETARY SUPPLEMENT
  3. VITAMIN E [Concomitant]
     Active Substance: .ALPHA.-TOCOPHEROL
  4. PROBIOTIC [Concomitant]
     Active Substance: PROBIOTICS NOS
  5. MULTI VITAMIN + MULTI MINERAL [Concomitant]
  6. ZYRTEC [Concomitant]
     Active Substance: CETIRIZINE HYDROCHLORIDE
  7. AIMOVIG [Suspect]
     Active Substance: ERENUMAB-AOOE
     Indication: MIGRAINE
     Dosage: ?          QUANTITY:2 INJECTION(S);OTHER FREQUENCY:ONCE A MONTH.;?
     Route: 030
  8. MODAFINIL. [Concomitant]
     Active Substance: MODAFINIL
  9. METOPROLOL. [Concomitant]
     Active Substance: METOPROLOL
  10. SAM-E [Concomitant]
     Active Substance: ADEMETIONINE
  11. DULOXETINE. [Concomitant]
     Active Substance: DULOXETINE
  12. SINGULAIR [Concomitant]
     Active Substance: MONTELUKAST SODIUM
  13. RESVERATROL [Concomitant]
     Active Substance: DIETARY SUPPLEMENT\RESVERATROL
  14. VITAMIN B12 [Concomitant]
     Active Substance: CYANOCOBALAMIN

REACTIONS (1)
  - Alopecia [None]

NARRATIVE: CASE EVENT DATE: 20181024
